FAERS Safety Report 9158094 (Version 1)
Quarter: 2013Q1

REPORT INFORMATION
  Report Type: Spontaneous
  Country: MX (occurrence: MX)
  Receive Date: 20130312
  Receipt Date: 20130312
  Transmission Date: 20140127
  Serious: Yes (Other)
  Sender: FDA-Public Use
  Company Number: MX-GLAXOSMITHKLINE-A1015364A

PATIENT
  Sex: 0

DRUGS (1)
  1. ELTROMBOPAG [Suspect]
     Indication: IDIOPATHIC THROMBOCYTOPENIC PURPURA
     Route: 065

REACTIONS (8)
  - Haemoptysis [Unknown]
  - Swelling [Unknown]
  - Pain [Unknown]
  - Tenderness [Unknown]
  - Skin warm [Unknown]
  - Erythema [Unknown]
  - Dyspnoea [Unknown]
  - Heart rate increased [Unknown]
